FAERS Safety Report 5447597-0 (Version None)
Quarter: 2007Q3

REPORT INFORMATION
  Report Type: 
  Country: None (occurrence: None)
  Receive Date: 20070905
  Receipt Date: 20070905
  Transmission Date: 20080115
  Serious: Yes (Other)
  Sender: FDA-Public Use
  Company Number: None

PATIENT
  Sex: Male
  Weight: 51.7101 kg

DRUGS (2)
  1. BARACLUDE [Suspect]
     Indication: HEPATITIS B VIRUS
     Dosage: 0.5MG DAILY PO
     Route: 048
  2. BARACLUDE [Suspect]
     Indication: VIRAL HEPATITIS CARRIER
     Dosage: 0.5MG DAILY PO
     Route: 048

REACTIONS (4)
  - ASTHENIA [None]
  - MUSCLE ATROPHY [None]
  - TEMPERATURE INTOLERANCE [None]
  - WEIGHT DECREASED [None]
